FAERS Safety Report 5232511-3 (Version None)
Quarter: 2007Q1

REPORT INFORMATION
  Report Type: 
  Country: None (occurrence: None)
  Receive Date: 20070207
  Receipt Date: 20070201
  Transmission Date: 20070707
  Serious: Yes (Congenital Anomaly)
  Sender: FDA-Public Use
  Company Number: US-GLAXOSMITHKLINE-A0567597A

PATIENT

DRUGS (4)
  1. TRIZIVIR [Suspect]
     Indication: HIV INFECTION
     Dosage: 1500MG PER DAY
     Dates: start: 20010920
  2. NEVIRAPINE [Suspect]
     Indication: HIV INFECTION
     Dosage: 400MG PER DAY
     Dates: start: 20000403
  3. ZIDOVUDINE [Suspect]
     Route: 042
     Dates: start: 20051122, end: 20051122
  4. ZIDOVUDINE [Suspect]
     Route: 042
     Dates: start: 20051122, end: 20051122

REACTIONS (4)
  - DRUG EXPOSURE DURING PREGNANCY [None]
  - HYDRONEPHROSIS [None]
  - PYELECTASIA [None]
  - ULTRASOUND SCAN ABNORMAL [None]
